FAERS Safety Report 8363149-7 (Version None)
Quarter: 2012Q2

REPORT INFORMATION
  Report Type: 
  Country: None (occurrence: None)
  Receive Date: 20120516
  Receipt Date: 20111101
  Transmission Date: 20120825
  Serious: Yes (Hospitalization)
  Sender: FDA-Public Use
  Company Number: US-ALEXION-A201101488

PATIENT

DRUGS (10)
  1. HYDROCODONE BITARTRATE [Concomitant]
     Indication: PAIN
     Dosage: UNK
  2. ARIXTRA [Concomitant]
     Indication: HYPERCOAGULATION
     Dosage: UNK
  3. FLEXERIL [Concomitant]
     Indication: PAIN
     Dosage: UNK
  4. EXJADE [Concomitant]
     Indication: IRON OVERLOAD
  5. LACTULOSE [Concomitant]
  6. DILAUDID [Concomitant]
     Indication: PAIN
     Dosage: UNK
  7. PROMETHAZINE [Concomitant]
     Indication: NAUSEA
     Dosage: UNK
  8. SOLIRIS [Suspect]
     Indication: PAROXYSMAL NOCTURNAL HAEMOGLOBINURIA
     Dosage: 1200 MG, Q2W
     Route: 042
     Dates: start: 20100801
  9. AMBIEN [Concomitant]
     Indication: SLEEP DISORDER
     Dosage: UNK
  10. XANAX [Concomitant]
     Indication: ANXIETY
     Dosage: UNK

REACTIONS (3)
  - CONFUSIONAL STATE [None]
  - HAEMOLYSIS [None]
  - AMMONIA INCREASED [None]
